FAERS Safety Report 7967857-9 (Version None)
Quarter: 2011Q4

REPORT INFORMATION
  Report Type: 
  Country: None (occurrence: None)
  Receive Date: 20111209
  Receipt Date: 20111129
  Transmission Date: 20120403
  Serious: Yes (Other)
  Sender: FDA-Public Use
  Company Number: US-BAYER-2011-048210

PATIENT
  Age: 47 Year
  Sex: Female
  Weight: 75 kg

DRUGS (3)
  1. YAZ [Suspect]
     Indication: PREMENSTRUAL SYNDROME
     Dosage: UNK
     Dates: start: 20050101, end: 20090601
  2. PERCOCET [OXYCODONE HYDROCHLORIDE,OXYCODONE TEREPHTHALATE,PARACETA [Concomitant]
  3. ZOLOFT [Concomitant]

REACTIONS (7)
  - DEEP VEIN THROMBOSIS [None]
  - INJURY [None]
  - MUSCLE SPASMS [None]
  - ANXIETY [None]
  - ANHEDONIA [None]
  - PAIN IN EXTREMITY [None]
  - PAIN [None]
